FAERS Safety Report 18967269 (Version 3)
Quarter: 2021Q3

REPORT INFORMATION
  Report Type: Spontaneous
  Country: BE (occurrence: BE)
  Receive Date: 20210304
  Receipt Date: 20210715
  Transmission Date: 20211014
  Serious: Yes (Hospitalization, Other)
  Sender: FDA-Public Use
  Company Number: BE-TEVA-2021-BE-1885947

PATIENT
  Age: 69 Year
  Sex: Male
  Weight: 84.3 kg

DRUGS (3)
  1. TRISENOX [Suspect]
     Active Substance: ARSENIC TRIOXIDE
     Indication: ACUTE PROMYELOCYTIC LEUKAEMIA
     Route: 065
     Dates: start: 20190611
  2. ALL?TRANS?RETINOIC ACID (ATRA) [Suspect]
     Active Substance: TRETINOIN
     Route: 065
  3. COLCHICINE. [Suspect]
     Active Substance: COLCHICINE
     Route: 065

REACTIONS (17)
  - Hepatic cytolysis [Recovered/Resolved]
  - Pleural effusion [Recovered/Resolved]
  - Myocardial ischaemia [Unknown]
  - Normocytic anaemia [Unknown]
  - Cardiovascular disorder [Recovered/Resolved]
  - Hypokalaemia [Unknown]
  - Malnutrition [Recovered/Resolved]
  - Bronchitis [Recovered/Resolved]
  - Pericardial effusion [Recovered/Resolved]
  - Chest pain [Unknown]
  - Pericarditis [Recovered/Resolved]
  - Septic coagulopathy [Recovered/Resolved]
  - Ventricular hypokinesia [Unknown]
  - Sinusitis [Recovered/Resolved]
  - Oedema peripheral [Recovered/Resolved]
  - Hypomagnesaemia [Unknown]
  - Decreased appetite [Recovered/Resolved]

NARRATIVE: CASE EVENT DATE: 201906
